FAERS Safety Report 7683309-8 (Version None)
Quarter: 2011Q3

REPORT INFORMATION
  Report Type: 
  Country: None (occurrence: None)
  Receive Date: 20110815
  Receipt Date: 20110803
  Transmission Date: 20111222
  Serious: Yes (Hospitalization)
  Sender: FDA-Public Use
  Company Number: FR-GLAXOSMITHKLINE-B0736773A

PATIENT
  Sex: Male

DRUGS (6)
  1. ACETAMINOPHEN [Concomitant]
  2. MIANSERINE [Concomitant]
  3. FUNGIZONE [Concomitant]
  4. LEVEMIR [Concomitant]
  5. ARIXTRA [Suspect]
     Indication: PRODUCT USED FOR UNKNOWN INDICATION
     Route: 065
     Dates: start: 20110620, end: 20110622
  6. RABEPRAZOLE SODIUM [Concomitant]

REACTIONS (1)
  - URTICARIA [None]
